FAERS Safety Report 21511324 (Version 1)
Quarter: 2022Q4

REPORT INFORMATION
  Report Type: Spontaneous
  Country: FR (occurrence: FR)
  Receive Date: 20221027
  Receipt Date: 20221027
  Transmission Date: 20230113
  Serious: Yes (Life-Threatening, Other)
  Sender: FDA-Public Use
  Company Number: None

PATIENT
  Age: 37 Year
  Sex: Female
  Weight: 119 kg

DRUGS (4)
  1. CYCLOPHOSPHAMIDE [Suspect]
     Active Substance: CYCLOPHOSPHAMIDE
     Indication: Acute lymphocytic leukaemia
     Dosage: ENDOXAN 1000 MG, LYOPHILISATE FOR SOLUTION FOR INJECTION, DOSE: 600 MG
     Route: 042
     Dates: start: 20220909, end: 20220912
  2. ONCOVIN [Suspect]
     Active Substance: VINCRISTINE SULFATE
     Indication: Acute lymphocytic leukaemia
     Dosage: 2 MG, SOLUTION INJECTABLE
     Route: 042
     Dates: start: 20220912, end: 20220912
  3. BESPONSA [Suspect]
     Active Substance: INOTUZUMAB OZOGAMICIN
     Indication: Acute lymphocytic leukaemia
     Dosage: 1.6 MG
     Route: 042
     Dates: start: 20220910, end: 20220910
  4. FLUCONAZOLE [Concomitant]
     Active Substance: FLUCONAZOLE
     Indication: Antifungal prophylaxis
     Dosage: 400 MG
     Route: 048
     Dates: start: 20220811

REACTIONS (1)
  - Cardiac autonomic neuropathy [Recovered/Resolved]

NARRATIVE: CASE EVENT DATE: 20220913
